FAERS Safety Report 19504911 (Version 1)
Quarter: 2021Q3

REPORT INFORMATION
  Report Type: Spontaneous
  Country: GB (occurrence: GB)
  Receive Date: 20210708
  Receipt Date: 20210708
  Transmission Date: 20211014
  Serious: Yes (Other)
  Sender: FDA-Public Use
  Company Number: GB-LUPIN PHARMACEUTICALS INC.-2021-11768

PATIENT
  Sex: Male

DRUGS (4)
  1. ASPIRIN. [Suspect]
     Active Substance: ASPIRIN
     Indication: CHRONIC VILLITIS OF UNKNOWN ETIOLOGY
     Dosage: UNK
     Route: 064
     Dates: start: 2020
  2. ENOXAPARIN [Suspect]
     Active Substance: ENOXAPARIN
     Indication: CHRONIC VILLITIS OF UNKNOWN ETIOLOGY
     Dosage: UNK
     Route: 064
     Dates: start: 2020
  3. PREDNISOLONE. [Suspect]
     Active Substance: PREDNISOLONE
     Indication: CHRONIC VILLITIS OF UNKNOWN ETIOLOGY
     Dosage: UNK
     Route: 064
     Dates: start: 2020
  4. HYDROXYCHLOROQUINE [Suspect]
     Active Substance: HYDROXYCHLOROQUINE
     Indication: CHRONIC VILLITIS OF UNKNOWN ETIOLOGY
     Dosage: UNK (INITIATED DURING THE SECOND TRIMESTER)
     Route: 064
     Dates: start: 2020

REACTIONS (2)
  - Premature baby [Unknown]
  - Foetal exposure during pregnancy [Unknown]

NARRATIVE: CASE EVENT DATE: 2020
